FAERS Safety Report 6187337-3 (Version None)
Quarter: 2009Q2

REPORT INFORMATION
  Report Type: 
  Country: None (occurrence: None)
  Receive Date: 20090512
  Receipt Date: 20090504
  Transmission Date: 20091009
  Serious: Yes (Death, Hospitalization, Congenital Anomaly)
  Sender: FDA-Public Use
  Company Number: A0681668A

PATIENT
  Sex: Male

DRUGS (7)
  1. PAXIL [Suspect]
     Indication: DRUG USE FOR UNKNOWN INDICATION
     Dates: start: 20010122
  2. PAROXETINE HYDROCHLORIDE [Suspect]
     Indication: DRUG USE FOR UNKNOWN INDICATION
  3. ANTIBIOTIC [Concomitant]
     Dates: start: 20040701
  4. AMOXICILLIN [Concomitant]
     Dates: start: 20040701
  5. TYLENOL [Concomitant]
  6. ZOFRAN [Concomitant]
     Dates: start: 20040701
  7. INHALER [Concomitant]

REACTIONS (5)
  - CONGENITAL AORTIC STENOSIS [None]
  - DRUG EXPOSURE DURING PREGNANCY [None]
  - HEART DISEASE CONGENITAL [None]
  - LEFT VENTRICULAR DYSFUNCTION [None]
  - MITRAL VALVE STENOSIS [None]
